FAERS Safety Report 20575236 (Version 3)
Quarter: 2024Q1

REPORT INFORMATION
  Report Type: Report from Study
  Country: US (occurrence: US)
  Receive Date: 20220310
  Receipt Date: 20240226
  Transmission Date: 20240410
  Serious: Yes (Other)
  Sender: FDA-Public Use
  Company Number: US-Merck Healthcare KGaA-9304495

PATIENT
  Sex: Male
  Weight: 59 kg

DRUGS (2)
  1. REBIF [Suspect]
     Active Substance: INTERFERON BETA-1A
     Indication: Multiple sclerosis
     Dosage: DEVICE: REBIJECT II.
     Route: 058
     Dates: start: 20190717
  2. REBIF [Suspect]
     Active Substance: INTERFERON BETA-1A

REACTIONS (1)
  - Abnormal loss of weight [Unknown]
